FAERS Safety Report 6400439-9 (Version None)
Quarter: 2009Q4

REPORT INFORMATION
  Report Type: 
  Country: None (occurrence: None)
  Receive Date: 20091007
  Receipt Date: 20091007
  Transmission Date: 20100525
  Serious: No
  Sender: FDA-Public Use
  Company Number: None

PATIENT
  Sex: Female
  Weight: 70.3075 kg

DRUGS (1)
  1. PERCOCET [Suspect]
     Indication: OSTEOARTHRITIS
     Dosage: 325/5 Q4-6 HRS PO
     Route: 048

REACTIONS (2)
  - MUSCLE SWELLING [None]
  - MUSCLE TIGHTNESS [None]
